FAERS Safety Report 17254141 (Version 3)
Quarter: 2020Q1

REPORT INFORMATION
  Report Type: Report from Study
  Country: US (occurrence: US)
  Receive Date: 20200109
  Receipt Date: 20200127
  Transmission Date: 20200409
  Serious: Yes (Hospitalization, Other)
  Sender: FDA-Public Use
  Company Number: US-GILEAD-2020-0445985

PATIENT
  Age: 18 Year
  Sex: Male

DRUGS (8)
  1. AZTREONAM LYSINE [Suspect]
     Active Substance: AZTREONAM LYSINE
     Indication: CYSTIC FIBROSIS LUNG
     Dosage: 1 DOSAGE FORM, TID, QOM
     Route: 055
     Dates: start: 20181026
  2. SMZ-TMP [Concomitant]
     Active Substance: SULFAMETHOXAZOLE\TRIMETHOPRIM
  3. AZATHIOPRINE. [Concomitant]
     Active Substance: AZATHIOPRINE
  4. TACROLIMUS. [Concomitant]
     Active Substance: TACROLIMUS
  5. TRESIBA [Concomitant]
     Active Substance: INSULIN DEGLUDEC
  6. EPINEPHRINE. [Concomitant]
     Active Substance: EPINEPHRINE
  7. PULMOZYME [Concomitant]
     Active Substance: DORNASE ALFA
  8. CYPROHEPTADINE. [Concomitant]
     Active Substance: CYPROHEPTADINE

REACTIONS (4)
  - Cystic fibrosis [Unknown]
  - Lung disorder [Unknown]
  - Pneumonia [Unknown]
  - Weight decreased [Unknown]

NARRATIVE: CASE EVENT DATE: 202001
